FAERS Safety Report 13588832 (Version 1)
Quarter: 2017Q2

REPORT INFORMATION
  Report Type: Spontaneous
  Country: US (occurrence: US)
  Receive Date: 20170529
  Receipt Date: 20170529
  Transmission Date: 20170830
  Serious: No
  Sender: FDA-Public Use
  Company Number: US-AMGEN-USASP2017078230

PATIENT
  Age: 52 Year
  Sex: Female

DRUGS (1)
  1. ENBREL [Suspect]
     Active Substance: ETANERCEPT
     Indication: SPONDYLOARTHROPATHY
     Dosage: 50 MG, QWK
     Route: 065
     Dates: start: 201704

REACTIONS (6)
  - Headache [Unknown]
  - Off label use [Unknown]
  - Weight increased [Unknown]
  - Back pain [Unknown]
  - Nausea [Unknown]
  - Sleep disorder [Unknown]

NARRATIVE: CASE EVENT DATE: 2017
